FAERS Safety Report 10031327 (Version 1)
Quarter: 2014Q1

REPORT INFORMATION
  Report Type: Spontaneous
  Country: US (occurrence: None)
  Receive Date: 20140306
  Receipt Date: 20140306
  Transmission Date: 20141002
  Serious: Yes (Disabling)
  Sender: FDA-Public Use
  Company Number: 163-21880-12033473

PATIENT
  Age: 82 Year
  Sex: Female
  Weight: 63.5 kg

DRUGS (6)
  1. REVLIMID [Suspect]
     Indication: MYELOFIBROSIS
     Dosage: 10 MG, 1 IN 1 D, PO
     Route: 048
     Dates: start: 20091022
  2. REVLIMID [Suspect]
     Indication: MYELODYSPLASTIC SYNDROME
     Dosage: 10 MG, 1 IN 1 D, PO
     Route: 048
     Dates: start: 20091022
  3. ARANESP (DARBEPOETIN ALFA) [Concomitant]
  4. DRISDOL (ERGOCALCIFEROL) [Concomitant]
  5. CALCIUM + VITAMIN D (LEKOVIT CA) [Concomitant]
  6. LANOXIN (DIGOXIN) [Concomitant]

REACTIONS (1)
  - Diarrhoea [None]
